FAERS Safety Report 25853403 (Version 2)
Quarter: 2025Q4

REPORT INFORMATION
  Report Type: Spontaneous
  Country: EU (occurrence: EU)
  Receive Date: 20250926
  Receipt Date: 20251003
  Transmission Date: 20260118
  Serious: Yes (Life-Threatening, Hospitalization, Other)
  Sender: SANDOZ
  Company Number: EU-MLMSERVICE-20190513-1754615-2

PATIENT
  Age: 12 Year
  Sex: Female
  Weight: 28 kg

DRUGS (18)
  1. ACYCLOVIR [Suspect]
     Active Substance: ACYCLOVIR
     Indication: Product used for unknown indication
     Dosage: UNK
     Route: 065
  2. AMIKACIN SULFATE [Suspect]
     Active Substance: AMIKACIN SULFATE
     Indication: Product used for unknown indication
     Dosage: UNK
     Route: 065
  3. VANCOMYCIN [Suspect]
     Active Substance: VANCOMYCIN
     Indication: Product used for unknown indication
     Dosage: UNK
     Route: 065
  4. ALBUMIN HUMAN [Concomitant]
     Active Substance: ALBUMIN HUMAN
     Indication: Hypoalbuminaemia
     Route: 065
  5. ALBUMIN HUMAN [Concomitant]
     Active Substance: ALBUMIN HUMAN
     Indication: Hypoalbuminaemia
     Route: 065
  6. CYCLOSPORINE [Concomitant]
     Active Substance: CYCLOSPORINE
     Indication: Immunosuppressant drug therapy
     Dosage: UNK
     Route: 065
  7. CYCLOSPORINE [Concomitant]
     Active Substance: CYCLOSPORINE
     Indication: Capillary leak syndrome
  8. METHYLPREDNISOLONE [Concomitant]
     Active Substance: METHYLPREDNISOLONE
     Dosage: 10 MG/KG, QOD
     Route: 065
  9. METHYLPREDNISOLONE [Concomitant]
     Active Substance: METHYLPREDNISOLONE
     Dosage: DAY 347, 10 MG/KG EVERY OTHER DAY
     Route: 065
  10. METHYLPREDNISOLONE [Concomitant]
     Active Substance: METHYLPREDNISOLONE
     Indication: Acute kidney injury
     Dosage: 25 MG/KG, PER DOSE
     Route: 042
  11. PREDNISONE [Concomitant]
     Active Substance: PREDNISONE
     Indication: Immunosuppressant drug therapy
     Dosage: PREDNISONE TAPERING ON DAYS 44 OF  TRANSPLAN
     Route: 065
  12. PREDNISONE [Concomitant]
     Active Substance: PREDNISONE
     Indication: Capillary leak syndrome
  13. COLCHICINE [Interacting]
     Active Substance: COLCHICINE
     Dosage: 0.125 MG, QD
     Route: 065
  14. COLCHICINE [Interacting]
     Active Substance: COLCHICINE
     Dosage: 0.5 MG, QD
     Route: 065
  15. COLCHICINE [Interacting]
     Active Substance: COLCHICINE
     Indication: Capillary leak syndrome
     Dosage: 1 MG, QD
     Route: 065
  16. COLCHICINE [Interacting]
     Active Substance: COLCHICINE
     Dosage: 0.5 MG ORALLY ON MARCH 7TH (10 ?G/KG PER  DAY (0.5 MG/DAY))
     Route: 048
  17. COLCHICINE [Interacting]
     Active Substance: COLCHICINE
     Indication: Polyserositis
     Dosage: 10 G/KG, QD
     Route: 065
  18. MYCOPHENOLATE MOFETIL [Interacting]
     Active Substance: MYCOPHENOLATE MOFETIL
     Indication: Acute kidney injury
     Dosage: DAY 347
     Route: 065

REACTIONS (7)
  - Acute kidney injury [Recovered/Resolved]
  - Nephropathy toxic [Recovered/Resolved]
  - Capillary leak syndrome [Recovered/Resolved]
  - Renal impairment [Recovered/Resolved]
  - Drug interaction [Unknown]
  - Leukopenia [Recovered/Resolved]
  - Product use in unapproved indication [Unknown]
